FAERS Safety Report 20664879 (Version 1)
Quarter: 2022Q2

REPORT INFORMATION
  Report Type: Spontaneous
  Country: ES (occurrence: None)
  Receive Date: 20220401
  Receipt Date: 20220401
  Transmission Date: 20220721
  Serious: Yes (Other)
  Sender: FDA-Public Use
  Company Number: ES-Fresenius Kabi-FK202203703

PATIENT
  Age: 22 Year
  Sex: Female

DRUGS (1)
  1. PROPOFOL [Suspect]
     Active Substance: PROPOFOL
     Indication: Sedation
     Dosage: PROPFOL WAS DISCONTINUED AND AFTER AE DOSE OF PROPOFOL WAS INCREASED, EXCEEDING THE MAXIMUM RECOMMEN
     Route: 065

REACTIONS (4)
  - Cardiogenic shock [Recovered/Resolved]
  - Propofol infusion syndrome [Recovered/Resolved]
  - Seizure [Recovered/Resolved]
  - Prescribed overdose [Recovered/Resolved]
